FAERS Safety Report 9925579 (Version 2)
Quarter: 2014Q1

REPORT INFORMATION
  Report Type: Spontaneous
  Country: US (occurrence: US)
  Receive Date: 20140226
  Receipt Date: 20140226
  Transmission Date: 20141002
  Serious: Yes (Hospitalization)
  Sender: FDA-Public Use
  Company Number: US-GLAXOSMITHKLINE-A0884627A

PATIENT
  Age: 75 Year
  Sex: Female

DRUGS (1)
  1. AVANDIA [Suspect]
     Indication: DIABETES MELLITUS
     Route: 048
     Dates: start: 20020111, end: 20020809

REACTIONS (4)
  - Cardiac failure congestive [Not Recovered/Not Resolved]
  - Depression [Unknown]
  - Myocardial ischaemia [Unknown]
  - Delirium [Unknown]
